FAERS Safety Report 23271984 (Version 1)
Quarter: 2023Q4

REPORT INFORMATION
  Report Type: Spontaneous
  Country: US (occurrence: US)
  Receive Date: 20231207
  Receipt Date: 20231207
  Transmission Date: 20240110
  Serious: No
  Sender: FDA-Public Use
  Company Number: US-FreseniusKabi-FK202319526

PATIENT
  Age: 51 Year
  Sex: Male
  Weight: 91 kg

DRUGS (11)
  1. SMOFLIPID [Suspect]
     Active Substance: FISH OIL\MEDIUM-CHAIN TRIGLYCERIDES\OLIVE OIL\SOYBEAN OIL
     Indication: Parenteral nutrition
     Dosage: 300 ML OVER 12 HOURS AT 25 ML/HOUR, NIGHTLY AT 21:00?FREQUENCY: ONCE?ROA - INTRAVENOUS
     Route: 042
  2. DEXAMETHASONE [Suspect]
     Active Substance: DEXAMETHASONE
     Indication: Adjuvant therapy
     Dosage: DOSE - 12 MG ONCE?ROA - INTRAVENOUS
     Route: 042
     Dates: end: 20231128
  3. MORPHINE [Suspect]
     Active Substance: MORPHINE
     Indication: Analgesic therapy
     Dosage: DOSE - 3 MG DOSE PRN [TOTAL DOSE RANGE PER DAY HAS BEEN 9-12 MG]?ROA - INTRAVENOUS
     Route: 042
  4. TPN [Concomitant]
     Active Substance: AMINO ACIDS\DEXTROSE\ELECTROLYTES NOS\SOYBEAN OIL
     Indication: Product used for unknown indication
     Dosage: SINCE 25 NOV 2023
     Dates: start: 20231125
  5. ZOFRAN [Concomitant]
     Active Substance: ONDANSETRON HYDROCHLORIDE
     Indication: Nausea
     Dosage: PRN
  6. ZOFRAN [Concomitant]
     Active Substance: ONDANSETRON HYDROCHLORIDE
     Indication: Vomiting
  7. PEPCID [Concomitant]
     Active Substance: FAMOTIDINE
     Indication: Product used for unknown indication
     Dosage: 2X A DAY
  8. LOVENOX [Concomitant]
     Active Substance: ENOXAPARIN SODIUM
     Indication: Prophylaxis
  9. LEVOTHYROXINE [Concomitant]
     Active Substance: LEVOTHYROXINE
     Indication: Product used for unknown indication
     Dosage: DOSE - 100 MCG, DAILY
  10. Carboplatin (by hospira) [Concomitant]
     Indication: Chemotherapy
     Dosage: 698 MG, ONCE
  11. Docetaxel (by Sun Pharma Industries) [Concomitant]
     Indication: Chemotherapy
     Dosage: 158 MG, ONCE

REACTIONS (2)
  - Energy increased [Recovered/Resolved]
  - Energy increased [Recovered/Resolved]

NARRATIVE: CASE EVENT DATE: 20231127
